FAERS Safety Report 12854837 (Version 1)
Quarter: 2016Q4

REPORT INFORMATION
  Report Type: Spontaneous
  Country: US (occurrence: US)
  Receive Date: 20161017
  Receipt Date: 20161017
  Transmission Date: 20170207
  Serious: Yes (Hospitalization, Other)
  Sender: FDA-Public Use
  Company Number: US-BELCHER PHARMACEUTICALS, LLC-2016VTS00170

PATIENT
  Sex: Female

DRUGS (17)
  1. HYOSCYAMINE SULFATE SL [Suspect]
     Active Substance: HYOSCYAMINE SULFATE
     Indication: ABDOMINAL PAIN UPPER
     Dosage: 0.125 MG, UP TO 2X/DAY
     Route: 060
  2. CALCIUM, VITAMIN D [Concomitant]
  3. HYDROCODONE /IBUPROFEN [Concomitant]
     Dosage: UNK, 6X/DAY
  4. ATIVAN [Concomitant]
     Active Substance: LORAZEPAM
     Dosage: UNK, 6X/DAY
  5. PEPCID [Concomitant]
     Active Substance: FAMOTIDINE
     Dosage: UNK, AS NEEDED
  6. IMITREX INJECTION [Concomitant]
  7. AZELASTINE [Concomitant]
     Active Substance: AZELASTINE
  8. EPIPEN [Concomitant]
     Active Substance: EPINEPHRINE
     Dosage: UNK, AS NEEDED
  9. HYDROXYZINE [Concomitant]
     Active Substance: HYDROXYZINE\HYDROXYZINE HYDROCHLORIDE
  10. IBUPROFEN. [Concomitant]
     Active Substance: IBUPROFEN
  11. BENTYL [Concomitant]
     Active Substance: DICYCLOMINE HYDROCHLORIDE
  12. BISOPROLOL FUMARATE. [Concomitant]
     Active Substance: BISOPROLOL FUMARATE
     Dosage: 0.25 DOSAGE UNITS, 1X/DAY
  13. UNSPECIFIED INHALER [Concomitant]
     Active Substance: UNSPECIFIED INGREDIENT
  14. BISOPROLOL FUMARATE. [Concomitant]
     Active Substance: BISOPROLOL FUMARATE
     Dosage: 0.5 DOSAGE UNITS, 1X/DAY
  15. VALIUM [Concomitant]
     Active Substance: DIAZEPAM
     Dosage: UNK, 1X/DAY
  16. BENADRYL [Concomitant]
     Active Substance: DIPHENHYDRAMINE HYDROCHLORIDE
  17. CEPHALEXIN LIQUID [Concomitant]
     Dosage: UNK, 1X/DAY

REACTIONS (28)
  - Colitis ischaemic [Unknown]
  - Amnesia [Unknown]
  - Dysarthria [Unknown]
  - Vision blurred [Unknown]
  - Balance disorder [Unknown]
  - Fibromyalgia [Not Recovered/Not Resolved]
  - Pain [Unknown]
  - Renal disorder [Recovering/Resolving]
  - Pyrexia [Unknown]
  - Spinal operation [Recovered/Resolved]
  - Shoulder operation [Unknown]
  - Urinary retention [Unknown]
  - Dizziness [Unknown]
  - Vitamin D decreased [Unknown]
  - Confusional state [Unknown]
  - Heart rate increased [Unknown]
  - Blood pressure increased [Unknown]
  - Hallucination [Unknown]
  - Urinary tract infection [Unknown]
  - Fall [Unknown]
  - Tremor [Unknown]
  - Photophobia [Unknown]
  - Dry mouth [Unknown]
  - Disorientation [Unknown]
  - Dry skin [Unknown]
  - Agitation [Unknown]
  - Escherichia infection [Unknown]
  - Migraine [Unknown]

NARRATIVE: CASE EVENT DATE: 2001
